FAERS Safety Report 6897658-4 (Version None)
Quarter: 2010Q3

REPORT INFORMATION
  Report Type: 
  Country: None (occurrence: None)
  Receive Date: 20100802
  Receipt Date: 20070628
  Transmission Date: 20110219
  Serious: No
  Sender: FDA-Public Use
  Company Number: US-PFIZER INC-2007054200

PATIENT
  Sex: Female
  Weight: 58.2 kg

DRUGS (19)
  1. LYRICA [Suspect]
     Indication: NEURALGIA
     Route: 048
     Dates: start: 20051130, end: 20060620
  2. ACETYLSALICYLIC ACID SRT [Concomitant]
  3. BACLOFEN [Concomitant]
  4. CELEXA [Concomitant]
  5. WARFARIN SODIUM [Concomitant]
  6. PROPACET 100 [Concomitant]
  7. TRAZODONE HYDROCHLORIDE [Concomitant]
  8. LASIX [Concomitant]
  9. NITROFURANTOIN [Concomitant]
  10. NEXIUM [Concomitant]
  11. TOPAMAX [Concomitant]
  12. PLAVIX [Concomitant]
  13. TEGRETOL [Concomitant]
  14. TIMOLOL MALEATE [Concomitant]
  15. ZOCOR [Concomitant]
  16. VASOTEC [Concomitant]
  17. VESICARE [Concomitant]
  18. WELLBUTRIN XL [Concomitant]
  19. LATANOPROST [Concomitant]

REACTIONS (1)
  - OEDEMA PERIPHERAL [None]
